FAERS Safety Report 11954615 (Version 4)
Quarter: 2016Q1

REPORT INFORMATION
  Report Type: Spontaneous
  Country: CA (occurrence: CA)
  Receive Date: 20160126
  Receipt Date: 20160202
  Transmission Date: 20160526
  Serious: Yes (Other)
  Sender: FDA-Public Use
  Company Number: CA-BAYER-2016-012916

PATIENT
  Age: 59 Year
  Sex: Male

DRUGS (1)
  1. CLARITIN [Suspect]
     Active Substance: LORATADINE
     Dosage: 10 MG, QD
     Dates: start: 2014

REACTIONS (3)
  - Extrasystoles [Not Recovered/Not Resolved]
  - Heart rate decreased [None]
  - Heart rate irregular [Not Recovered/Not Resolved]
